FAERS Safety Report 4664454-8 (Version None)
Quarter: 2005Q2

REPORT INFORMATION
  Report Type: 
  Country: None (occurrence: None)
  Receive Date: 20050518
  Receipt Date: 20050506
  Transmission Date: 20051028
  Serious: Yes (Hospitalization)
  Sender: FDA-Public Use
  Company Number: US-SOLVAY-00205001466

PATIENT
  Sex: Female

DRUGS (1)
  1. PROMETRIUM [Suspect]
     Indication: AMENORRHOEA
     Dosage: DAILY DOSE: 400 MILLIGRAM(S)
     Route: 048

REACTIONS (1)
  - COLITIS ISCHAEMIC [None]
